FAERS Safety Report 9244981 (Version 1)
Quarter: 2013Q1

REPORT INFORMATION
  Report Type: Spontaneous
  Country: US (occurrence: None)
  Receive Date: 20121130
  Receipt Date: 20121130
  Transmission Date: 20140127
  Serious: Yes (Hospitalization, Other)
  Sender: FDA-Public Use
  Company Number: US201209005840

PATIENT
  Age: 79 Year
  Sex: Female

DRUGS (4)
  1. BYETTA [Suspect]
     Route: 058
     Dates: start: 2007
  2. STARLIX (NATEGLINIDE) TABLET [Concomitant]
  3. LEVEMIR(INSULIN DETEMIR) [Concomitant]
  4. HYZAAR (HYDROCHLOROTHIAZIDE, LOSARTAN POTASSIUM) [Concomitant]

REACTIONS (1)
  - Pancreatitis [None]
